FAERS Safety Report 7288867-3 (Version None)
Quarter: 2011Q1

REPORT INFORMATION
  Report Type: 
  Country: None (occurrence: None)
  Receive Date: 20110211
  Receipt Date: 20110202
  Transmission Date: 20110831
  Serious: Yes (Other)
  Sender: FDA-Public Use
  Company Number: BR-ASTRAZENECA-2011SE06678

PATIENT
  Age: 82 Year
  Sex: Female
  Weight: 44 kg

DRUGS (8)
  1. METOPROLOL TARTRATE [Suspect]
     Route: 048
  2. ATACAND [Suspect]
     Indication: HYPERTENSION
     Route: 048
     Dates: start: 20100101, end: 20101201
  3. ATACAND [Suspect]
     Route: 048
  4. METOPROLOL TARTRATE [Suspect]
     Indication: HYPERTENSION
     Route: 048
     Dates: start: 20100101, end: 20101201
  5. UNKNOWN [Concomitant]
     Indication: THROMBOSIS
     Route: 058
  6. CALCIUM [Concomitant]
     Indication: OSTEOPOROSIS
     Route: 048
     Dates: start: 20000101
  7. ATACAND [Suspect]
     Route: 048
  8. SYNTHROID [Concomitant]
     Indication: HYPOTHYROIDISM
     Route: 048
     Dates: start: 19950101

REACTIONS (2)
  - OEDEMA PERIPHERAL [None]
  - THROMBOSIS [None]
